FAERS Safety Report 9179372 (Version 2)
Quarter: 2013Q2

REPORT INFORMATION
  Report Type: Spontaneous
  Country: US (occurrence: US)
  Receive Date: 20130321
  Receipt Date: 20130515
  Transmission Date: 20140414
  Serious: Yes (Death, Hospitalization, Other)
  Sender: FDA-Public Use
  Company Number: US-ELI_LILLY_AND_COMPANY-US201212003504

PATIENT
  Age: 87 Year
  Sex: Female

DRUGS (7)
  1. CYMBALTA [Suspect]
     Indication: DEPRESSION
     Dosage: 20 MG, QD
     Route: 048
     Dates: start: 20120720, end: 20130111
  2. CHEMOTHERAPEUTICS [Concomitant]
  3. PARACETAMOL [Concomitant]
     Dosage: UNK UNK, PRN
     Route: 065
  4. ROXANOL [Concomitant]
     Indication: PAIN
     Dosage: UNK, PRN
     Route: 065
  5. LORAZEPAM INTENSOL [Concomitant]
     Indication: ANXIETY
     Dosage: UNK, PRN
  6. GLYCOPYRROLATE [Concomitant]
     Indication: SECRETION DISCHARGE
     Dosage: 1 ML, PRN
     Route: 030
  7. PREDNISOLONE [Concomitant]
     Dosage: UNK, QD
     Route: 047

REACTIONS (15)
  - Cardiac arrest [Fatal]
  - Thrombosis [Unknown]
  - Anaemia [Unknown]
  - Gangrene [Unknown]
  - Nail injury [Unknown]
  - Oedema peripheral [Unknown]
  - Skin fragility [Unknown]
  - Laceration [Unknown]
  - Hyperaesthesia [Unknown]
  - Hangnail [Unknown]
  - Contusion [Unknown]
  - Skin haemorrhage [Unknown]
  - Haemorrhage [Unknown]
  - Fall [Unknown]
  - Agitation [Unknown]
